FAERS Safety Report 23718648 (Version 3)
Quarter: 2024Q3

REPORT INFORMATION
  Report Type: Report from Study
  Country: US (occurrence: US)
  Receive Date: 20240408
  Receipt Date: 20240717
  Transmission Date: 20241017
  Serious: Yes (Other)
  Sender: UCB
  Company Number: US-UCBSA-2024004006

PATIENT
  Age: 31 Year
  Sex: Female
  Weight: 42.9 kg

DRUGS (8)
  1. FINTEPLA [Suspect]
     Active Substance: FENFLURAMINE
     Indication: Severe myoclonic epilepsy of infancy
     Dosage: 3.5 MILLILITER, 2X/DAY (BID)
     Route: 048
     Dates: start: 20221022
  2. DEPO-PROVERA [Concomitant]
     Active Substance: MEDROXYPROGESTERONE ACETATE
     Indication: Oral contraception
     Dosage: 150 MILLIGRAM (INJECT 1ML INTO THE MUSCLE ONCE FOR A 1 DOSE) Q90 DAYS
     Route: 030
  3. BANZEL [Concomitant]
     Active Substance: RUFINAMIDE
     Indication: Product used for unknown indication
     Dosage: 1 TABLET EVERY MORNING AND 2 TABLET AT NIGHTLY AT BEDTIME
     Route: 048
  4. EPIDIOLEX [Concomitant]
     Active Substance: CANNABIDIOL
     Indication: Product used for unknown indication
     Dosage: 4 MILLILITER, 2X/DAY (BID)
     Route: 048
  5. DEPAKOTE ER [Concomitant]
     Active Substance: DIVALPROEX SODIUM
     Indication: Product used for unknown indication
     Dosage: 500 MILLIGRAM, ONCE DAILY (QD) (250MG-2 TABLET NIGHTLY AT BEDTIME)
     Route: 048
  6. DIAZEPAM [Concomitant]
     Active Substance: DIAZEPAM
     Indication: Seizure
     Dosage: 2 MILLILITER, 2X/DAY (BID)
     Route: 048
  7. MIDAZOLAM [Concomitant]
     Active Substance: MIDAZOLAM
     Indication: Seizure
     Dosage: 01 MILLILITER, AS NEEDED (PRN) FOR OTHER (FOR SEIZURES LASTING LONGER THAN 5 MINUTES OR 2 OR MORE SE
     Route: 045
  8. MINERALS\OMEGA-3 FATTY ACIDS\VITAMINS [Concomitant]
     Active Substance: MINERALS\OMEGA-3 FATTY ACIDS\VITAMINS
     Indication: Product used for unknown indication
     Dosage: 1 DOSAGE FORM, ONCE DAILY (QD)

REACTIONS (7)
  - Seizure [Recovering/Resolving]
  - Irritability [Recovered/Resolved]
  - Incontinence [Recovered/Resolved]
  - Behaviour disorder [Recovering/Resolving]
  - Intermenstrual bleeding [Unknown]
  - Drug ineffective [Unknown]
  - Patient uncooperative [Recovered/Resolved]

NARRATIVE: CASE EVENT DATE: 20240119
